FAERS Safety Report 5982225-7 (Version None)
Quarter: 2008Q4

REPORT INFORMATION
  Report Type: 
  Country: None (occurrence: None)
  Receive Date: 20081208
  Receipt Date: 20081126
  Transmission Date: 20090506
  Serious: Yes (Other)
  Sender: FDA-Public Use
  Company Number: US-JNJFOC-20081200135

PATIENT
  Sex: Female
  Weight: 61.69 kg

DRUGS (4)
  1. REMICADE [Suspect]
     Indication: RHEUMATOID ARTHRITIS
     Dosage: RECEIVED 3 DOSES
     Route: 042
  2. PREDNISONE TAB [Concomitant]
  3. IMURAN [Concomitant]
  4. FORTEO [Concomitant]

REACTIONS (5)
  - BACK PAIN [None]
  - CYANOSIS [None]
  - DYSPNOEA [None]
  - IMMOBILE [None]
  - INFUSION RELATED REACTION [None]
